FAERS Safety Report 5076361-X (Version None)
Quarter: 2006Q3

REPORT INFORMATION
  Report Type: 
  Country: None (occurrence: None)
  Receive Date: 20060807
  Receipt Date: 20060726
  Transmission Date: 20061208
  Serious: Yes (Other)
  Sender: FDA-Public Use
  Company Number: CHNY2006AU02186

PATIENT
  Age: 26 Year
  Sex: Female

DRUGS (2)
  1. NICOTINE [Suspect]
     Dosage: 21 MG CUT IN HALF DURING DAY TIME, TRANSDERMAL
     Route: 062
     Dates: start: 20060718, end: 20060718
  2. ORAL CONTRACEPTIVE NOS (ORAL CONTRACEPTIVE NOS) [Concomitant]

REACTIONS (5)
  - AMBLYOPIA [None]
  - EYE PAIN [None]
  - OCULAR HYPERAEMIA [None]
  - VIRAL INFECTION [None]
  - WRONG TECHNIQUE IN DRUG USAGE PROCESS [None]
